FAERS Safety Report 18171870 (Version 2)
Quarter: 2020Q3

REPORT INFORMATION
  Report Type: Spontaneous
  Country: CN (occurrence: CN)
  Receive Date: 20200819
  Receipt Date: 20200825
  Transmission Date: 20201103
  Serious: Yes (Other)
  Sender: FDA-Public Use
  Company Number: CN-ASTRAZENECA-2020SF03114

PATIENT
  Age: 60 Year
  Sex: Female

DRUGS (2)
  1. TAGRISSO [Suspect]
     Active Substance: OSIMERTINIB
     Indication: NON-SMALL CELL LUNG CANCER
     Route: 048
     Dates: start: 20200421
  2. CHINESE MEDICINE [Concomitant]
     Active Substance: UNSPECIFIED INGREDIENT
     Indication: PHYSICAL DECONDITIONING
     Route: 065

REACTIONS (13)
  - Skeletal injury [Unknown]
  - Spinal column injury [Unknown]
  - Spinal disorder [Not Recovered/Not Resolved]
  - Extraocular muscle paresis [Unknown]
  - Lung cancer metastatic [Unknown]
  - Head discomfort [Not Recovered/Not Resolved]
  - Vision blurred [Not Recovered/Not Resolved]
  - Dizziness [Unknown]
  - Bone hypertrophy [Unknown]
  - Tongue erythema [Not Recovered/Not Resolved]
  - Fatigue [Unknown]
  - Brain neoplasm [Unknown]
  - Keratitis [Unknown]
